FAERS Safety Report 12215072 (Version 2)
Quarter: 2016Q2

REPORT INFORMATION
  Report Type: Report from Study
  Country: CA (occurrence: CA)
  Receive Date: 20160328
  Receipt Date: 20160620
  Transmission Date: 20160815
  Serious: Yes (Other)
  Sender: FDA-Public Use
  Company Number: CA-JNJFOC-20160321853

PATIENT
  Age: 48 Year
  Sex: Female
  Weight: 103 kg

DRUGS (1)
  1. STELARA [Suspect]
     Active Substance: USTEKINUMAB
     Indication: PSORIATIC ARTHROPATHY
     Route: 058
     Dates: start: 20150624

REACTIONS (3)
  - Uterine cancer [Unknown]
  - Precancerous cells present [Unknown]
  - Menorrhagia [Unknown]

NARRATIVE: CASE EVENT DATE: 201511
